FAERS Safety Report 21887586 (Version 1)
Quarter: 2023Q1

REPORT INFORMATION
  Report Type: Report from Study
  Country: AU (occurrence: AU)
  Receive Date: 20230120
  Receipt Date: 20230120
  Transmission Date: 20230418
  Serious: Yes (Other)
  Sender: FDA-Public Use
  Company Number: AU-ABBVIE-4246269

PATIENT
  Sex: Female

DRUGS (2)
  1. CARBIDOPA\LEVODOPA [Suspect]
     Active Substance: CARBIDOPA\LEVODOPA
     Indication: Parkinson^s disease
     Dosage: DOSE REDUCED TO 3.5 ML/ HR, DOSE DURATION:16 HOURS
     Route: 050
  2. CARBIDOPA\LEVODOPA [Suspect]
     Active Substance: CARBIDOPA\LEVODOPA
     Dosage: DOSE DURATION:16 HOURS
     Route: 050
     Dates: start: 20141124

REACTIONS (4)
  - Suicidal ideation [Unknown]
  - Extra dose administered [Unknown]
  - Stress [Unknown]
  - Dyskinesia [Unknown]
